FAERS Safety Report 4897464-6 (Version None)
Quarter: 2006Q1

REPORT INFORMATION
  Report Type: 
  Country: None (occurrence: None)
  Receive Date: 20060130
  Receipt Date: 20060130
  Transmission Date: 20060701
  Serious: Yes (Other)
  Sender: FDA-Public Use
  Company Number: None

PATIENT
  Age: 42 Year
  Sex: Female
  Weight: 48.9885 kg

DRUGS (2)
  1. CYMBALTA [Suspect]
     Indication: DEPRESSION
     Dosage: 1 CAPSULE DAILY PO
     Route: 048
     Dates: start: 20051010, end: 20051222
  2. CYMBALTA [Suspect]
     Indication: HEADACHE
     Dosage: 1 CAPSULE DAILY PO
     Route: 048
     Dates: start: 20051010, end: 20051222

REACTIONS (6)
  - ABNORMAL BEHAVIOUR [None]
  - AGITATION [None]
  - CRYING [None]
  - NERVOUS SYSTEM DISORDER [None]
  - PANIC ATTACK [None]
  - PARANOIA [None]
